FAERS Safety Report 20188467 (Version 1)
Quarter: 2021Q4

REPORT INFORMATION
  Report Type: Spontaneous
  Country: US (occurrence: None)
  Receive Date: 20211215
  Receipt Date: 20211215
  Transmission Date: 20220304
  Serious: Yes (Hospitalization)
  Sender: FDA-Public Use
  Company Number: None

PATIENT
  Age: 90 Year
  Sex: Female
  Weight: 48.99 kg

DRUGS (2)
  1. CASIRIVIMAB [Suspect]
     Active Substance: CASIRIVIMAB
     Indication: SARS-CoV-2 test positive
     Dosage: OTHER FREQUENCY : ONCE;?
     Route: 040
     Dates: start: 20211207, end: 20211207
  2. IMDEVIMAB [Suspect]
     Active Substance: IMDEVIMAB
     Indication: SARS-CoV-2 test positive
     Dosage: OTHER FREQUENCY : ONCE;?
     Route: 040
     Dates: start: 20211207, end: 20211207

REACTIONS (9)
  - Dyspnoea [None]
  - Cough [None]
  - Malaise [None]
  - Fatigue [None]
  - Decreased appetite [None]
  - Oxygen saturation decreased [None]
  - Tachycardia [None]
  - COVID-19 pneumonia [None]
  - Acute respiratory failure [None]

NARRATIVE: CASE EVENT DATE: 20211210
